FAERS Safety Report 8509784-4 (Version None)
Quarter: 2012Q3

REPORT INFORMATION
  Report Type: 
  Country: None (occurrence: None)
  Receive Date: 20120713
  Receipt Date: 20120705
  Transmission Date: 20120928
  Serious: Yes (Other)
  Sender: FDA-Public Use
  Company Number: CA-SANOFI-AVENTIS-2012SA048253

PATIENT
  Age: 63 Year
  Sex: Female
  Weight: 96 kg

DRUGS (5)
  1. FLUCONAZOLE [Concomitant]
     Route: 048
  2. ACETAMINOPHEN [Concomitant]
  3. ANASTROZOLE [Concomitant]
     Dosage: STRENGTH: 1 MG
     Route: 048
  4. TAXOTERE [Suspect]
     Route: 042
  5. DIPHENHYDRAMINE HCL [Concomitant]
     Route: 065

REACTIONS (3)
  - COMPUTERISED TOMOGRAM ABNORMAL [None]
  - DYSPNOEA [None]
  - LUNG INFILTRATION [None]
